FAERS Safety Report 16527871 (Version 4)
Quarter: 2020Q3

REPORT INFORMATION
  Report Type: Spontaneous
  Country: US (occurrence: US)
  Receive Date: 20190703
  Receipt Date: 20200825
  Transmission Date: 20201102
  Serious: Yes (Other)
  Sender: FDA-Public Use
  Company Number: US-PFIZER INC-2016408014

PATIENT
  Age: 56 Year
  Sex: Male
  Weight: 108 kg

DRUGS (20)
  1. PROMETHAZINE [Concomitant]
     Active Substance: PROMETHAZINE HYDROCHLORIDE
     Dosage: 25 MG, AS NEEDED
  2. BACLOFEN. [Concomitant]
     Active Substance: BACLOFEN
     Dosage: 100 MG, DAILY (TAKE TWO TABLETS BY MOUTH EVERY MORNING AND ONE TABLET BY MOUTH EVERY DAY AT LUNCH)
     Route: 048
  3. GABAPENTIN. [Concomitant]
     Active Substance: GABAPENTIN
     Dosage: 1200 MG, 3X/DAY [2 TAB EVERY 8 HOURS]
     Route: 048
  4. METHADONE [Concomitant]
     Active Substance: METHADONE HYDROCHLORIDE
     Dosage: 10 MG, 3X/DAY [EVERY 8 HOURS]
     Route: 048
  5. LYRICA [Suspect]
     Active Substance: PREGABALIN
     Dosage: 150 MG, UNK
  6. OXYCODONE [Concomitant]
     Active Substance: OXYCODONE
     Indication: PAIN
     Dosage: 30 MG, AS NEEDED (EVERY 4 HOURS)
     Route: 048
  7. SENNA GLYCOSIDES [Concomitant]
     Active Substance: HERBALS\SENNOSIDES
     Dosage: 34.4 MG, 1X/DAY [4 TABS AT NOON]
     Route: 048
  8. LYRICA [Suspect]
     Active Substance: PREGABALIN
     Indication: SPINAL CORD INJURY
     Dosage: 100 MG, 3X/DAY (1 CAP EVERY 8 HOURS)
     Route: 048
     Dates: start: 20160729
  9. LYRICA [Suspect]
     Active Substance: PREGABALIN
     Dosage: 200 MG, UNK
  10. OXYBUTYNIN. [Concomitant]
     Active Substance: OXYBUTYNIN CHLORIDE
     Dosage: 10 MG, DAILY [1 TAB]
     Route: 048
  11. LYRICA [Suspect]
     Active Substance: PREGABALIN
     Dosage: 100 MG, UNK
     Route: 048
  12. AMITRIPTYLINE [Concomitant]
     Active Substance: AMITRIPTYLINE
     Dosage: 100 MG, 1X/DAY (EVERY NIGHT AT BEDTIME)
     Route: 048
  13. SENNA GLYCOSIDES [Concomitant]
     Active Substance: HERBALS\SENNOSIDES
     Dosage: 17.2 MG, DAILY [2 TABS DAILY]
     Route: 048
  14. METFORMIN [Concomitant]
     Active Substance: METFORMIN HYDROCHLORIDE
     Dosage: UNK
  15. AMBIEN [Concomitant]
     Active Substance: ZOLPIDEM TARTRATE
     Indication: SLEEP DISORDER
     Dosage: 10 MG, AS NEEDED [1 TAB, BEDTIME]
     Route: 048
  16. LANTUS [Concomitant]
     Active Substance: INSULIN GLARGINE
     Dosage: 50 IU, DAILY (100 IU/ML)
     Route: 058
  17. TIZANIDINE. [Concomitant]
     Active Substance: TIZANIDINE
     Dosage: 4 MG, 3X/DAY (TAKE 1 TABLET EVERY 8 HOURS)
     Route: 048
  18. OXYBUTIN [Concomitant]
     Active Substance: OXYBUTYNIN
     Dosage: UNK
  19. DOCQLACE [Concomitant]
     Active Substance: DOCUSATE SODIUM
     Dosage: 100 MG, 2X/DAY
     Route: 048
  20. SERTRALINE [Concomitant]
     Active Substance: SERTRALINE HYDROCHLORIDE
     Dosage: 200 MG, DAILY [2 TABS]
     Route: 048

REACTIONS (3)
  - Pain [Unknown]
  - Drug ineffective [Unknown]
  - COVID-19 [Unknown]
